FAERS Safety Report 5765536-X (Version None)
Quarter: 2008Q2

REPORT INFORMATION
  Report Type: 
  Country: None (occurrence: None)
  Receive Date: 20080605
  Receipt Date: 20080519
  Transmission Date: 20081010
  Serious: Yes (Disabling, Other)
  Sender: FDA-Public Use
  Company Number: 2008001171

PATIENT
  Age: 58 Year
  Sex: Male

DRUGS (1)
  1. TARCEVA [Suspect]
     Indication: NON-SMALL CELL LUNG CANCER
     Dosage: (150 MG, QD), ORAL; (100 MG, QD), ORAL
     Route: 048

REACTIONS (5)
  - CONJUNCTIVITIS [None]
  - DEAFNESS BILATERAL [None]
  - DERMATITIS ACNEIFORM [None]
  - DIARRHOEA [None]
  - TYMPANIC MEMBRANE PERFORATION [None]
